FAERS Safety Report 21318719 (Version 1)
Quarter: 2022Q3

REPORT INFORMATION
  Report Type: Spontaneous
  Country: US (occurrence: US)
  Receive Date: 20220911
  Receipt Date: 20220911
  Transmission Date: 20221027
  Serious: No
  Sender: FDA-Public Use
  Company Number: US-SA-SAC20220830000897

PATIENT
  Age: 36 Year
  Sex: Male
  Weight: 86.18 kg

DRUGS (1)
  1. DUPIXENT [Suspect]
     Active Substance: DUPILUMAB
     Indication: Dermatitis atopic
     Dosage: 300MG, QOW
     Route: 058
     Dates: start: 2022

REACTIONS (6)
  - COVID-19 [Unknown]
  - Photophobia [Unknown]
  - Vision blurred [Unknown]
  - Pruritus [Unknown]
  - Therapeutic response shortened [Unknown]
  - Herpes simplex [Unknown]

NARRATIVE: CASE EVENT DATE: 20220101
